FAERS Safety Report 4979612-2 (Version None)
Quarter: 2006Q2

REPORT INFORMATION
  Report Type: 
  Country: None (occurrence: None)
  Receive Date: 20060421
  Receipt Date: 20060410
  Transmission Date: 20061013
  Serious: Yes (Hospitalization)
  Sender: FDA-Public Use
  Company Number: PHHO2006GB05843

PATIENT
  Age: 44 Year
  Sex: Male

DRUGS (12)
  1. NEORAL [Suspect]
     Indication: RENAL TRANSPLANT
     Dosage: 200 MG, BID
     Route: 048
     Dates: start: 20050909
  2. NEORAL [Suspect]
     Dosage: 125 MG, BID
     Route: 048
  3. MYCOPHENOLATE MOFETIL [Suspect]
     Indication: RENAL TRANSPLANT
     Dosage: 1 G, BID
     Route: 048
     Dates: start: 20050908, end: 20051004
  4. MYCOPHENOLATE MOFETIL [Suspect]
     Dosage: 500 MG, TID
     Route: 048
     Dates: start: 20051005, end: 20051006
  5. MYCOPHENOLATE MOFETIL [Suspect]
     Route: 048
     Dates: start: 20051012
  6. SOLUPRED [Suspect]
     Indication: RENAL TRANSPLANT
     Dosage: 40 MG, QD
     Route: 048
     Dates: start: 20050908
  7. SOLUPRED [Suspect]
     Dosage: 10 MG, QD
     Route: 048
  8. ZENAPAX [Suspect]
     Indication: RENAL TRANSPLANT
     Dosage: 2 MG/KG, ONCE/SINGLE
     Route: 042
     Dates: start: 20050908, end: 20050908
  9. ZENAPAX [Suspect]
     Dosage: 75 MG, ONCE/SINGLE
     Route: 042
     Dates: start: 20050922, end: 20050922
  10. INIPOMP [Concomitant]
  11. BACTRIM [Concomitant]
  12. MAGNE B6 [Concomitant]

REACTIONS (1)
  - LUNG DISORDER [None]
